FAERS Safety Report 19569457 (Version 1)
Quarter: 2021Q3

REPORT INFORMATION
  Report Type: Spontaneous
  Country: IT (occurrence: IT)
  Receive Date: 20210716
  Receipt Date: 20210716
  Transmission Date: 20211014
  Serious: Yes (Other)
  Sender: FDA-Public Use
  Company Number: IT-PFIZER INC-2021840093

PATIENT
  Age: 61 Year
  Sex: Male

DRUGS (6)
  1. DAUNORUBICIN HCL [Suspect]
     Active Substance: DAUNORUBICIN HYDROCHLORIDE
     Indication: ACUTE MYELOID LEUKAEMIA
     Dosage: 60 MG/M2, DAILY (DAY 1?3)
     Dates: start: 20200821
  2. CYTARABINE. [Suspect]
     Active Substance: CYTARABINE
     Indication: ACUTE MYELOID LEUKAEMIA
     Dosage: 200 MG/M2, DAILY (DAY 1?7)
     Dates: start: 20200821
  3. MYLOTARG [Suspect]
     Active Substance: GEMTUZUMAB OZOGAMICIN
     Indication: ACUTE MYELOID LEUKAEMIA
     Dosage: 5 MG, DAILY (DAY 1, 4, 7)
     Dates: start: 20200821
  4. CYTARABINE. [Suspect]
     Active Substance: CYTARABINE
     Dosage: 1G/M2 X2 DAYS 1?4
     Dates: start: 20201013
  5. MYLOTARG [Suspect]
     Active Substance: GEMTUZUMAB OZOGAMICIN
     Dosage: 5 MG, DAILY (DAY 1)
     Dates: start: 20201013
  6. DAUNORUBICIN HCL [Suspect]
     Active Substance: DAUNORUBICIN HYDROCHLORIDE
     Dosage: 60 MG/M2, DAILY (DAY 1)
     Dates: start: 20201013

REACTIONS (5)
  - Necrotising colitis [Recovered/Resolved]
  - Neutropenia [Unknown]
  - Hyperpyrexia [Recovered/Resolved]
  - Thrombocytopenia [Unknown]
  - Bone marrow failure [Unknown]
